FAERS Safety Report 9248971 (Version 1)
Quarter: 2013Q1

REPORT INFORMATION
  Report Type: Spontaneous
  Country: US (occurrence: None)
  Receive Date: 20130305
  Receipt Date: 20130305
  Transmission Date: 20140127
  Serious: Yes (Other)
  Sender: FDA-Public Use
  Company Number: 163-21880-12100275

PATIENT
  Age: 74 Year
  Sex: Male

DRUGS (4)
  1. REVLIMID [Suspect]
     Indication: PLASMA CELL MYELOMA
     Dosage: 10MG, 21 IN 21 D, PO
     Route: 048
     Dates: start: 20120913
  2. ZOLPIDEM TARTRATE (ZOLPIDEM TARTRATE) [Concomitant]
  3. TAMSULOSIN HCL (TAMSULOSIN HYDROCHLORIDE) [Concomitant]
  4. FISH OIL BURPLESS (FISH OIL) [Concomitant]

REACTIONS (2)
  - Bone pain [None]
  - Arthralgia [None]
